FAERS Safety Report 4821978-8 (Version None)
Quarter: 2005Q4

REPORT INFORMATION
  Report Type: 
  Country: None (occurrence: None)
  Receive Date: 20051103
  Receipt Date: 20051021
  Transmission Date: 20060501
  Serious: Yes (Life-Threatening, Hospitalization, Disabling)
  Sender: FDA-Public Use
  Company Number: CERZ-10458

PATIENT
  Age: 3 Year
  Sex: Female
  Weight: 13 kg

DRUGS (2)
  1. CEREZYME [Suspect]
     Indication: GAUCHER'S DISEASE
     Dosage: 1000 UNITS Q2WKS IV
     Route: 042
     Dates: start: 20030919
  2. CEREZYME [Suspect]
     Indication: GAUCHER'S DISEASE
     Dosage: 800 UNITS Q3WKS IV
     Route: 042
     Dates: start: 20020621

REACTIONS (3)
  - CARDIO-RESPIRATORY ARREST [None]
  - CHOKING [None]
  - INJURY ASPHYXIATION [None]
